FAERS Safety Report 4751705-4 (Version None)
Quarter: 2005Q3

REPORT INFORMATION
  Report Type: 
  Country: None (occurrence: None)
  Receive Date: 20050822
  Receipt Date: 20050822
  Transmission Date: 20060218
  Serious: Yes (Other)
  Sender: FDA-Public Use
  Company Number: None

PATIENT
  Age: 35 Year
  Sex: Male
  Weight: 77.1115 kg

DRUGS (1)
  1. CIALIS [Suspect]
     Indication: ERECTILE DYSFUNCTION
     Dosage: 10MG ON DEMAND PO
     Route: 048
     Dates: start: 20050817, end: 20050817

REACTIONS (3)
  - ARTHRALGIA [None]
  - FATIGUE [None]
  - NECK PAIN [None]
